FAERS Safety Report 7958890-1 (Version None)
Quarter: 2011Q4

REPORT INFORMATION
  Report Type: 
  Country: None (occurrence: None)
  Receive Date: 20111201
  Receipt Date: 20111125
  Transmission Date: 20120403
  Serious: Yes (Life-Threatening, Hospitalization, Other)
  Sender: FDA-Public Use
  Company Number: AUR-APL-2011-05951

PATIENT
  Age: 80 Year
  Sex: Female

DRUGS (8)
  1. TAFLUPROST (TAFLUPROST) [Concomitant]
  2. ACETAMINOPHEN W/ CODEINE [Concomitant]
  3. CARBOMER 960 (CARBOMER) [Concomitant]
  4. TEMAZEPAM [Concomitant]
  5. ATENOLOL [Concomitant]
  6. LANSOPRAZOLE [Concomitant]
  7. CITALOPRAM HYDROBROMIDE [Suspect]
     Indication: DEPRESSION
     Dosage: (40 MG),ORAL
     Route: 048
     Dates: start: 20110101, end: 20111118
  8. PRAVASTATIN [Concomitant]

REACTIONS (5)
  - HYPOVOLAEMIA [None]
  - BLOOD PRESSURE DECREASED [None]
  - HAEMOGLOBIN DECREASED [None]
  - DIZZINESS [None]
  - INTRA-ABDOMINAL HAEMORRHAGE [None]
